FAERS Safety Report 24167617 (Version 1)
Quarter: 2024Q3

REPORT INFORMATION
  Report Type: Spontaneous
  Country: US (occurrence: None)
  Receive Date: 20240801
  Receipt Date: 20240801
  Transmission Date: 20241017
  Serious: Yes (Hospitalization)
  Sender: Public
  Company Number: None

PATIENT
  Age: 65 Year
  Sex: Male

DRUGS (3)
  1. TACROLIMUS [Suspect]
     Active Substance: TACROLIMUS
     Indication: Liver transplant
     Dosage: 0.5MG TWICE DAILY BY MIOUTH
     Route: 048
     Dates: start: 202402
  2. VEMLIDY [Suspect]
     Active Substance: TENOFOVIR ALAFENAMIDE FUMARATE
     Indication: Laboratory test abnormal
     Dosage: 25MG DAILY BY MOUTH
     Route: 048
     Dates: start: 202401
  3. DIFLUCAN [Suspect]
     Active Substance: FLUCONAZOLE

REACTIONS (8)
  - Pyrexia [None]
  - Chills [None]
  - Nausea [None]
  - Vomiting [None]
  - Infection [None]
  - Drug interaction [None]
  - Drug level increased [None]
  - Symptom masked [None]

NARRATIVE: CASE EVENT DATE: 20240708
